FAERS Safety Report 7055590-X (Version None)
Quarter: 2010Q4

REPORT INFORMATION
  Report Type: 
  Country: None (occurrence: None)
  Receive Date: 20101021
  Receipt Date: 20101014
  Transmission Date: 20110411
  Serious: Yes (Hospitalization)
  Sender: FDA-Public Use
  Company Number: PHHO2010JP13285

PATIENT
  Sex: Male

DRUGS (17)
  1. CERTICAN [Suspect]
     Indication: RENAL TRANSPLANT
     Dosage: 0.75 MG
     Route: 048
     Dates: start: 20090514
  2. CERTICAN [Suspect]
     Dosage: 1.5 MG
     Route: 048
     Dates: start: 20100407
  3. NEORAL [Suspect]
     Indication: RENAL TRANSPLANT
     Dosage: 200 MG
     Route: 048
     Dates: start: 20090617
  4. SIMULECT [Concomitant]
     Indication: RENAL TRANSPLANT
  5. MEDROL [Concomitant]
     Indication: RENAL TRANSPLANT
  6. PRIDOL [Concomitant]
     Indication: PROPHYLAXIS AGAINST TRANSPLANT REJECTION
  7. LIPITOR [Concomitant]
     Indication: HYPERLIPIDAEMIA
  8. DIOVAN [Concomitant]
     Indication: HYPERTENSION
     Dosage: UNK
  9. ASPIRIN [Concomitant]
     Indication: THROMBOSIS PROPHYLAXIS
  10. ISODINE [Concomitant]
     Indication: INFECTION PROPHYLAXIS
  11. BASEN [Concomitant]
     Indication: GLUCOSE TOLERANCE IMPAIRED
  12. TAGAMET [Concomitant]
     Indication: PROPHYLAXIS AGAINST GASTROINTESTINAL ULCER
  13. ALOSENN [Concomitant]
     Indication: CONSTIPATION
  14. DALACIN T [Concomitant]
     Indication: ACNE
  15. MAGNESIUM OXIDE [Concomitant]
     Indication: CONSTIPATION
  16. NITROGEN LIQUID [Concomitant]
     Indication: SKIN PAPILLOMA
  17. KERATINAMIN [Concomitant]
     Indication: HYPERKERATOSIS PALMARIS AND PLANTARIS

REACTIONS (6)
  - BLOOD CREATININE INCREASED [None]
  - CHRONIC ALLOGRAFT NEPHROPATHY [None]
  - KIDNEY TRANSPLANT REJECTION [None]
  - NEPHROPATHY TOXIC [None]
  - RENAL TUBULAR DISORDER [None]
  - RENAL TUBULAR NECROSIS [None]
